FAERS Safety Report 9303611 (Version 3)
Quarter: 2013Q2

REPORT INFORMATION
  Report Type: Spontaneous
  Country: US (occurrence: US)
  Receive Date: 20130522
  Receipt Date: 20130605
  Transmission Date: 20140414
  Serious: Yes (Hospitalization, Other)
  Sender: FDA-Public Use
  Company Number: US-PFIZER INC-2013118663

PATIENT
  Age: 43 Year
  Sex: Female

DRUGS (9)
  1. LYRICA [Suspect]
     Indication: FIBROMYALGIA
     Dosage: 100 MG, 3X/DAY
     Dates: start: 2010
  2. CELEXA [Suspect]
     Indication: DEPRESSION
     Dosage: 40 MG, 1X/DAY (DAILY)
  3. PERCOCET [Concomitant]
     Indication: PAIN
     Dosage: UNKNOWN
  4. PERCOCET [Concomitant]
     Indication: INTERVERTEBRAL DISC PROTRUSION
  5. VALIUM [Concomitant]
     Dosage: UNKNOWN
  6. ALEVE [Concomitant]
     Dosage: UNKNOWN
  7. MULTIVITAMINS [Concomitant]
     Dosage: UNKNOWN
  8. DIAZEPAM [Concomitant]
     Indication: ANXIETY
     Dosage: UNK
  9. DIAZEPAM [Concomitant]
     Indication: MUSCLE SPASMS

REACTIONS (7)
  - Stress [Unknown]
  - Depression [Unknown]
  - Pain [Unknown]
  - Pain [Unknown]
  - Gait disturbance [Unknown]
  - Movement disorder [Unknown]
  - Feeling abnormal [Unknown]
